FAERS Safety Report 8444787-X (Version None)
Quarter: 2012Q2

REPORT INFORMATION
  Report Type: 
  Country: None (occurrence: None)
  Receive Date: 20120323
  Receipt Date: 20110817
  Transmission Date: 20120825
  Serious: Yes (Hospitalization)
  Sender: FDA-Public Use
  Company Number: 163-21880-11082165

PATIENT
  Age: 57 Year
  Sex: Female
  Weight: 95.709 kg

DRUGS (16)
  1. NORVASC [Concomitant]
  2. SPIRIVA (TIOTROPIUM BROMIDE)(UNKNOWN) [Concomitant]
  3. COLACE (DOCUSATE SODIUM)(UNKNOWN) [Concomitant]
  4. XANAX [Concomitant]
  5. FLAGYL [Concomitant]
  6. LASIX [Concomitant]
  7. GLUCOTROL (GLIPIZIDE)(UNKNOWN) [Concomitant]
  8. AMBIEN [Concomitant]
  9. LABETALOL (LABETALOL)(UNKNOWN) [Concomitant]
  10. PULMICORT (BUDESONIDE)(UNKNOWN) [Concomitant]
  11. LENALIDOMIDE [Suspect]
     Indication: MULTIPLE MYELOMA
     Dosage: 15 MG, EVERY OTHER DAY X 21 DAYS EVERY 28 DAYS, PO
     Route: 048
     Dates: start: 20110714
  12. ADVAIR (SERETIDE MITE)(UNKNOWN) [Concomitant]
  13. VANCOMYCIN [Concomitant]
  14. BACLOFEN [Concomitant]
  15. ALBUTEIN (ALBUMIN NORMAL HUMAN SERUM)(UNKNOWN) [Concomitant]
  16. IMDUR (ISOSORBIDE MONONITRATE)(UNKNOWN) [Concomitant]

REACTIONS (1)
  - LOCALISED INFECTION [None]
